FAERS Safety Report 7522870-0 (Version None)
Quarter: 2011Q2

REPORT INFORMATION
  Report Type: 
  Country: None (occurrence: None)
  Receive Date: 20110603
  Receipt Date: 20110523
  Transmission Date: 20111010
  Serious: Yes (Other)
  Sender: FDA-Public Use
  Company Number: FR-SANOFI-AVENTIS-2011SA033071

PATIENT
  Sex: Female

DRUGS (8)
  1. DOCETAXEL [Concomitant]
     Route: 042
  2. GEMCITABINE [Concomitant]
     Route: 042
  3. DOXORUBICIN HYDROCHLORIDE [Concomitant]
     Route: 042
  4. OXALIPLATIN [Suspect]
     Indication: OVARIAN EPITHELIAL CANCER
     Route: 033
  5. CYCLOPHOSPHAMIDE [Concomitant]
     Route: 042
  6. CISPLATIN [Concomitant]
     Route: 042
  7. TAXOL [Concomitant]
     Route: 042
  8. CARBOPLATIN [Concomitant]
     Route: 042

REACTIONS (13)
  - CHEMICAL PERITONITIS [None]
  - DECREASED APPETITE [None]
  - ILEUS [None]
  - HYDRONEPHROSIS [None]
  - SPLENIC HAEMATOMA [None]
  - HYPOKALAEMIA [None]
  - HYPERBILIRUBINAEMIA [None]
  - PERITONEAL HAEMORRHAGE [None]
  - FISTULA [None]
  - THROMBOCYTOPENIA [None]
  - NEUTROPENIA [None]
  - PERITONITIS [None]
  - PAROTITIS [None]
